FAERS Safety Report 6441959-0 (Version None)
Quarter: 2009Q4

REPORT INFORMATION
  Report Type: 
  Country: None (occurrence: None)
  Receive Date: 20091116
  Receipt Date: 20091104
  Transmission Date: 20100525
  Serious: Yes (Other)
  Sender: FDA-Public Use
  Company Number: IL-TYCO HEALTHCARE/MALLINCKRODT-T200902050

PATIENT
  Age: 74 Year
  Sex: Female

DRUGS (2)
  1. ANAFRANIL CAP [Suspect]
     Indication: DEPRESSION
     Dosage: 75 MG, UNK
  2. VENLAFAXINE [Concomitant]

REACTIONS (1)
  - SEROTONIN SYNDROME [None]
